FAERS Safety Report 8842880 (Version 1)
Quarter: 2012Q4

REPORT INFORMATION
  Report Type: 
  Country: US (occurrence: US)
  Receive Date: 20121016
  Receipt Date: 20121016
  Transmission Date: 20130627
  Serious: Yes (Life-Threatening, Hospitalization, Other)
  Sender: FDA-Public Use
  Company Number: US-CELGENEUS-163-21880-09060885

PATIENT
  Sex: Male

DRUGS (3)
  1. REVLIMID [Suspect]
     Indication: MULTIPLE MYELOMA WITHOUT MENTION OF REMISSION
     Dosage: 25 Milligram
     Route: 048
     Dates: start: 20090507
  2. ARANESP [Suspect]
     Indication: ANEMIA
     Dosage: 300 mcg/0.6 ml
     Route: 058
     Dates: start: 20090430
  3. DEXAMETHASONE [Concomitant]
     Indication: DRUG USE FOR UNKNOWN INDICATION
     Route: 065

REACTIONS (2)
  - Renal failure [Unknown]
  - Deep vein thrombosis [Recovered/Resolved]
